FAERS Safety Report 8069926-4 (Version None)
Quarter: 2012Q1

REPORT INFORMATION
  Report Type: 
  Country: None (occurrence: None)
  Receive Date: 20120125
  Receipt Date: 20120125
  Transmission Date: 20120608
  Serious: Yes (Other)
  Sender: FDA-Public Use
  Company Number: None

PATIENT
  Age: 55 Year
  Sex: Male
  Weight: 81.646 kg

DRUGS (1)
  1. CYMBALTA [Suspect]
     Indication: DEPRESSION
     Dosage: 60 MG.
     Route: 048
     Dates: start: 20011004, end: 20111217

REACTIONS (14)
  - VERTIGO [None]
  - HUNGER [None]
  - VISION BLURRED [None]
  - IRRITABILITY [None]
  - HEADACHE [None]
  - HYPERHIDROSIS [None]
  - PYREXIA [None]
  - HEART RATE INCREASED [None]
  - TREMOR [None]
  - INSOMNIA [None]
  - DRUG WITHDRAWAL SYNDROME [None]
  - PARAESTHESIA [None]
  - NAUSEA [None]
  - TINNITUS [None]
